FAERS Safety Report 8716727 (Version 2)
Quarter: 2012Q4

REPORT INFORMATION
  Report Type: 
  Country: US (occurrence: US)
  Receive Date: 20120810
  Receipt Date: 20120906
  Transmission Date: 20130627
  Serious: No
  Sender: FDA-Public Use
  Company Number: US-PFIZER INC-2012192651

PATIENT
  Age: 91 Year
  Sex: Female
  Weight: 68.03 kg

DRUGS (2)
  1. PREGABALIN [Suspect]
     Indication: BACK PAIN
     Dosage: UNK, 2x/day
     Route: 048
     Dates: start: 20120719, end: 20120728
  2. PREGABALIN [Suspect]
     Indication: BACK DISORDER

REACTIONS (4)
  - Malaise [Recovered/Resolved]
  - Sedation [Recovered/Resolved]
  - Feeling abnormal [Recovered/Resolved]
  - Blood glucose increased [Recovered/Resolved]
